FAERS Safety Report 5460337-4 (Version None)
Quarter: 2007Q3

REPORT INFORMATION
  Report Type: 
  Country: None (occurrence: None)
  Receive Date: 20070919
  Receipt Date: 20070910
  Transmission Date: 20080115
  Serious: Yes (Hospitalization)
  Sender: FDA-Public Use
  Company Number: US-ASTRAZENECA-2007AC01744

PATIENT
  Age: 17 Year
  Sex: Female

DRUGS (9)
  1. ZOMIG [Suspect]
     Indication: MIGRAINE
     Route: 048
  2. METHOTREXATE [Interacting]
     Indication: ACUTE LYMPHOCYTIC LEUKAEMIA
     Dosage: 1ST DOSE
     Route: 042
  3. METHOTREXATE [Interacting]
     Dosage: SECOND DOSE
     Route: 042
  4. METHOTREXATE [Interacting]
     Dosage: THIRD DOSE
     Route: 042
  5. METHOTREXATE [Interacting]
     Dosage: FOURTH DOSE
     Route: 042
  6. METHOTREXATE [Interacting]
     Dosage: FIFTH DOSE
     Route: 042
  7. METHOTREXATE [Interacting]
     Dosage: FIFTH DOSE (UNIT DOSE UNKNOWN)
     Route: 042
  8. METHOTREXATE [Interacting]
     Dosage: FIFTH DOSE (UNIT DOSE UNKNOWN)
     Route: 042
  9. METHOTREXATE [Interacting]
     Dosage: FIFTH DOSE (UNIT DOSE UNKNOWN)
     Route: 042

REACTIONS (2)
  - DRUG INTERACTION [None]
  - RENAL FAILURE ACUTE [None]
